FAERS Safety Report 6401441-3 (Version None)
Quarter: 2009Q4

REPORT INFORMATION
  Report Type: 
  Country: None (occurrence: None)
  Receive Date: 20091015
  Receipt Date: 20080514
  Transmission Date: 20100525
  Serious: Yes (Hospitalization, Other)
  Sender: FDA-Public Use
  Company Number: US-ASTRAZENECA-2008UW04858

PATIENT
  Age: 88 Year
  Sex: Female
  Weight: 49.6 kg

DRUGS (25)
  1. SEROQUEL [Suspect]
     Indication: SLEEP DISORDER
     Dosage: 50 TO 300 MG
     Route: 048
     Dates: start: 20020610
  2. SEROQUEL [Suspect]
     Indication: HALLUCINATION
     Dosage: 50 TO 300 MG
     Route: 048
     Dates: start: 20020610
  3. SEROQUEL [Suspect]
     Indication: DEPRESSION
     Dosage: 50 TO 300 MG
     Route: 048
     Dates: start: 20020610
  4. SEROQUEL [Suspect]
     Dosage: 25-450 MG
     Route: 048
     Dates: start: 20020701
  5. SEROQUEL [Suspect]
     Dosage: 25-450 MG
     Route: 048
     Dates: start: 20020701
  6. SEROQUEL [Suspect]
     Dosage: 25-450 MG
     Route: 048
     Dates: start: 20020701
  7. RISPERDAL [Concomitant]
     Dates: start: 20021102, end: 20040123
  8. ABILIFY [Concomitant]
     Dates: start: 20030908
  9. LASIX [Concomitant]
     Dosage: 40-80 MG
     Route: 048
     Dates: start: 20040708
  10. LOPRESSOR [Concomitant]
     Dosage: 50-300 MG
     Route: 048
     Dates: start: 19940921
  11. KLONOPIN [Concomitant]
     Route: 048
     Dates: start: 20070814
  12. ISORDIL [Concomitant]
     Dosage: 20-60 MG
     Route: 048
     Dates: start: 19940921
  13. GUANFACINE HYDROCHLORIDE [Concomitant]
     Route: 048
     Dates: start: 20020506
  14. TRAMADOL HCL [Concomitant]
     Dates: start: 20070306
  15. PLAVIX [Concomitant]
     Dates: start: 20070320
  16. ASPIRIN [Concomitant]
     Dates: start: 19940921
  17. CLONIDINE [Concomitant]
     Dates: start: 20070320
  18. TRICOR [Concomitant]
     Dates: start: 20070320
  19. AMBIEN [Concomitant]
     Dates: start: 20070320
  20. ENALAPRIL MALEATE [Concomitant]
     Dates: start: 20020502
  21. SULFAMETHOXAZOLE AND TRIMETHOPRIM [Concomitant]
     Dates: start: 20040702
  22. GLYBURIDE [Concomitant]
     Dates: start: 20040706
  23. NORVASC [Concomitant]
     Dates: start: 20040712
  24. POLARAMINE [Concomitant]
     Dates: start: 20020514
  25. LIPITOR [Concomitant]
     Dates: start: 20020526

REACTIONS (4)
  - CEREBROVASCULAR DISORDER [None]
  - HYPOGLYCAEMIA [None]
  - TRANSIENT ISCHAEMIC ATTACK [None]
  - TYPE 2 DIABETES MELLITUS [None]
